FAERS Safety Report 21632464 (Version 1)
Quarter: 2022Q4

REPORT INFORMATION
  Report Type: Spontaneous
  Country: US (occurrence: None)
  Receive Date: 20221122
  Receipt Date: 20221122
  Transmission Date: 20230113
  Serious: Yes (Other)
  Sender: FDA-Public Use
  Company Number: None

PATIENT
  Sex: Female

DRUGS (13)
  1. VERZENIO [Suspect]
     Active Substance: ABEMACICLIB
     Indication: Breast cancer female
     Dosage: ?TAKE 1 TABLET (100 MG) BY MOOUTH EVERY MORNING,L TAKE 1 TABLET (50  MG) BY MOUTH EVERY EVENING??
     Route: 048
     Dates: start: 20211025
  2. VERZENIO [Suspect]
     Active Substance: ABEMACICLIB
     Dosage: OTHER FREQUENCY : EVERY EVENING;?
     Route: 048
  3. VERZENIO [Suspect]
     Active Substance: ABEMACICLIB
     Indication: Breast cancer female
     Dosage: ?TAKE 1 TABLET (100 MG) BY MOOUTH EVERY MORNING,L TAKE 1 TABLET (50  MG) BY MOUTH EVERY EVENING?
     Route: 048
     Dates: start: 20190119
  4. VERZENIO [Suspect]
     Active Substance: ABEMACICLIB
     Dosage: OTHER FREQUENCY : EVERY MORNING;?
     Route: 048
  5. CALCIUM [Concomitant]
     Active Substance: CALCIUM
  6. EFFEXOR [Concomitant]
     Active Substance: VENLAFAXINE HYDROCHLORIDE
  7. FASLODEX [Concomitant]
     Active Substance: FULVESTRANT
  8. GABAPENTIN [Concomitant]
     Active Substance: GABAPENTIN
  9. VITAMINS [Concomitant]
     Active Substance: VITAMINS
  10. PERCOCET [Concomitant]
     Active Substance: ACETAMINOPHEN\OXYCODONE HYDROCHLORIDE
  11. TRAZODONE [Concomitant]
     Active Substance: TRAZODONE HYDROCHLORIDE
  12. TYENOL [Concomitant]
  13. XGEVA [Concomitant]
     Active Substance: DENOSUMAB

REACTIONS (1)
  - Therapy interrupted [None]
